FAERS Safety Report 17408951 (Version 1)
Quarter: 2020Q1

REPORT INFORMATION
  Report Type: Spontaneous
  Country: US (occurrence: US)
  Receive Date: 20200212
  Receipt Date: 20200212
  Transmission Date: 20200409
  Serious: No
  Sender: FDA-Public Use
  Company Number: US-BAUSCH-BL-2020-000736

PATIENT
  Age: 78 Year
  Sex: Female

DRUGS (2)
  1. TRULANCE [Suspect]
     Active Substance: PLECANATIDE
     Indication: IRRITABLE BOWEL SYNDROME
     Route: 065
  2. TRULANCE [Suspect]
     Active Substance: PLECANATIDE
     Dosage: SWITCHED TO 1.5 MG EVERY DAY WITH GOOD EFFECT
     Route: 065

REACTIONS (4)
  - Wrong technique in product usage process [Unknown]
  - Incorrect dose administered [Unknown]
  - Faecal volume increased [Recovering/Resolving]
  - Frequent bowel movements [Recovering/Resolving]
